FAERS Safety Report 4588046-4 (Version None)
Quarter: 2005Q1

REPORT INFORMATION
  Report Type: 
  Country: None (occurrence: None)
  Receive Date: 20050216
  Receipt Date: 20050128
  Transmission Date: 20050727
  Serious: Yes (Death)
  Sender: FDA-Public Use
  Company Number: US_0502111747

PATIENT
  Age: 72 Year
  Sex: Male

DRUGS (3)
  1. ZYPREXA [Suspect]
     Indication: AGITATION
     Dosage: 10 MG/1 DAY
  2. ZYPREXA [Suspect]
     Indication: DELIRIUM
     Dosage: 10 MG/1 DAY
  3. ZYPREXA [Suspect]
     Indication: HALLUCINATION
     Dosage: 10 MG/1 DAY

REACTIONS (1)
  - SLEEP PHASE RHYTHM DISTURBANCE [None]
